FAERS Safety Report 14937456 (Version 1)
Quarter: 2018Q2

REPORT INFORMATION
  Report Type: Report from Study
  Country: DE (occurrence: DE)
  Receive Date: 20180525
  Receipt Date: 20180525
  Transmission Date: 20180711
  Serious: Yes (Other)
  Sender: FDA-Public Use
  Company Number: DE-ROCHE-2129203

PATIENT

DRUGS (1)
  1. ALTEPLASE. [Suspect]
     Active Substance: ALTEPLASE
     Indication: CEREBROVASCULAR ACCIDENT
     Dosage: 0.9 MG/KG BODY-WEIGHT UP TO A MAXIMUM OF 90 MG, 10% AS BOLUS, 90% OVER 1 HOUR AS INFUSION
     Route: 042

REACTIONS (1)
  - Mental disorder [Unknown]
